FAERS Safety Report 21320105 (Version 3)
Quarter: 2022Q4

REPORT INFORMATION
  Report Type: Spontaneous
  Country: US (occurrence: US)
  Receive Date: 20220911
  Receipt Date: 20221103
  Transmission Date: 20230113
  Serious: No
  Sender: FDA-Public Use
  Company Number: US-SA-SAC20220907000271

PATIENT
  Age: 75 Year
  Sex: Female

DRUGS (1)
  1. DUPIXENT [Suspect]
     Active Substance: DUPILUMAB
     Indication: Asthma
     Dosage: 300 MG, QOW
     Route: 058
     Dates: start: 20201008

REACTIONS (6)
  - Migraine [Unknown]
  - Head discomfort [Unknown]
  - Eye pain [Unknown]
  - Sinus disorder [Unknown]
  - Headache [Unknown]
  - Sinusitis [Unknown]

NARRATIVE: CASE EVENT DATE: 20220801
